FAERS Safety Report 4832271-1 (Version None)
Quarter: 2005Q4

REPORT INFORMATION
  Report Type: 
  Country: None (occurrence: None)
  Receive Date: 20051119
  Receipt Date: 20050919
  Transmission Date: 20060501
  Serious: Yes (Congenital Anomaly, Other)
  Sender: FDA-Public Use
  Company Number: GB-ABBOTT-05P-167-0311341-00

PATIENT
  Sex: Female

DRUGS (1)
  1. VALPROATE SODIUM [Suspect]
     Indication: DRUG EXPOSURE DURING PREGNANCY

REACTIONS (21)
  - ABNORMAL BEHAVIOUR [None]
  - AGGRESSION [None]
  - ARTHROPATHY [None]
  - BALANCE DISORDER [None]
  - CONGENITAL ANOMALY [None]
  - CONGENITAL NOSE MALFORMATION [None]
  - CONGENITAL ORAL MALFORMATION [None]
  - COORDINATION ABNORMAL [None]
  - DECREASED ACTIVITY [None]
  - DEVELOPMENTAL DELAY [None]
  - DISTURBANCE IN ATTENTION [None]
  - EAR MALFORMATION [None]
  - FACIAL DYSMORPHISM [None]
  - FOETAL VALPROATE SYNDROME [None]
  - HYPERTELORISM OF ORBIT [None]
  - HYPOTONIA [None]
  - JOINT HYPEREXTENSION [None]
  - LEARNING DISORDER [None]
  - PERSONALITY DISORDER [None]
  - SPEECH DISORDER DEVELOPMENTAL [None]
  - TRISOMY 21 [None]
